FAERS Safety Report 24771249 (Version 1)
Quarter: 2024Q4

REPORT INFORMATION
  Report Type: Spontaneous
  Country: RU (occurrence: RU)
  Receive Date: 20241224
  Receipt Date: 20241224
  Transmission Date: 20250115
  Serious: Yes (Disabling, Other)
  Sender: MSN LABORATORIES PRIVATE LIMITED
  Company Number: RU-MLMSERVICE-20241127-PI272173-00128-6

PATIENT

DRUGS (8)
  1. PACLITAXEL [Suspect]
     Active Substance: PACLITAXEL
     Indication: Breast cancer stage II
     Dosage: ON DAYS 1, 8, AND 15 (21-DAY CYCLE)
     Route: 065
  2. PACLITAXEL [Suspect]
     Active Substance: PACLITAXEL
     Indication: HER2 negative breast cancer
  3. DOXORUBICIN [Suspect]
     Active Substance: DOXORUBICIN
     Indication: Breast cancer stage II
     Dosage: ON THE DAY 1 OF THE TREATMENT CYCLE AND THE TREATMENT CYCLE WAS 14 DAYS
     Route: 065
  4. DOXORUBICIN [Suspect]
     Active Substance: DOXORUBICIN
     Indication: HER2 negative breast cancer
  5. CARBOPLATIN [Suspect]
     Active Substance: CARBOPLATIN
     Indication: Breast cancer stage II
     Dosage: AT A DOSE OF AUC 6 ON DAY 1
     Route: 065
  6. CARBOPLATIN [Suspect]
     Active Substance: CARBOPLATIN
     Indication: HER2 negative breast cancer
  7. CYCLOPHOSPHAMIDE [Suspect]
     Active Substance: CYCLOPHOSPHAMIDE
     Indication: Breast cancer stage II
     Dosage: THE TREATMENT CYCLE WAS 14 DAYS, AND MEDICATION RECEIVED N DAY 1 OF THE CYCLE
     Route: 065
  8. CYCLOPHOSPHAMIDE [Suspect]
     Active Substance: CYCLOPHOSPHAMIDE
     Indication: HER2 negative breast cancer

REACTIONS (16)
  - Somnolence [Unknown]
  - Memory impairment [Unknown]
  - Tonsillitis [Unknown]
  - Condition aggravated [Unknown]
  - Herpes zoster [Unknown]
  - Hepatic function abnormal [Unknown]
  - Urinary tract infection [Unknown]
  - Leukopenia [Unknown]
  - Neutropenia [Unknown]
  - Fatigue [Unknown]
  - Eosinophilia [Unknown]
  - Basophilia [Unknown]
  - Weight increased [Unknown]
  - Iron deficiency anaemia [Unknown]
  - Pharyngitis [Unknown]
  - Alopecia [Unknown]
